FAERS Safety Report 9246104 (Version 1)
Quarter: 2013Q2

REPORT INFORMATION
  Report Type: Spontaneous
  Country: US (occurrence: US)
  Receive Date: 20130422
  Receipt Date: 20130422
  Transmission Date: 20140414
  Serious: Yes (Hospitalization, Other)
  Sender: FDA-Public Use
  Company Number: US-AMGEN-USASP2013026855

PATIENT
  Age: 39 Year
  Sex: Female

DRUGS (1)
  1. ENBREL [Suspect]
     Indication: RHEUMATOID ARTHRITIS
     Dosage: 50 MG, QWK
     Dates: start: 20130102

REACTIONS (8)
  - Disorientation [Recovered/Resolved]
  - Loss of consciousness [Recovered/Resolved]
  - Tachycardia [Recovered/Resolved]
  - Blood pressure abnormal [Not Recovered/Not Resolved]
  - Unresponsive to stimuli [Recovered/Resolved]
  - Gastrointestinal oedema [Recovered/Resolved]
  - Hypertension [Not Recovered/Not Resolved]
  - Pulse abnormal [Not Recovered/Not Resolved]
